FAERS Safety Report 24121169 (Version 1)
Quarter: 2024Q3

REPORT INFORMATION
  Report Type: Report from Study
  Country: GB (occurrence: GB)
  Receive Date: 20240722
  Receipt Date: 20240722
  Transmission Date: 20241016
  Serious: Yes (Other)
  Sender: SANDOZ
  Company Number: GB-SANDOZ-SDZ2024GB066453

PATIENT
  Sex: Male

DRUGS (1)
  1. ERELZI [Suspect]
     Active Substance: ETANERCEPT-SZZS
     Indication: Psoriatic arthropathy
     Dosage: 50 MG, QW,50MG/1ML SOLUTION FOR INJECTION PRE-FILLED SYRINGES (SANDOZ LTD) 4 PRE-FILLED DISPOSABLE
     Route: 058

REACTIONS (1)
  - Myocardial infarction [Unknown]
